FAERS Safety Report 16400758 (Version 1)
Quarter: 2019Q2

REPORT INFORMATION
  Report Type: Spontaneous
  Country: FR (occurrence: FR)
  Receive Date: 20190606
  Receipt Date: 20190606
  Transmission Date: 20190711
  Serious: Yes (Hospitalization)
  Sender: FDA-Public Use
  Company Number: FR-MYLANLABS-14X-056-1192258-00

PATIENT
  Age: 51 Year
  Sex: Female
  Weight: 75 kg

DRUGS (4)
  1. ANDROCUR 12.5 MG [Suspect]
     Active Substance: CYPROTERONE ACETATE
     Indication: AMENORRHOEA
  2. OROMONE [Suspect]
     Active Substance: ESTRADIOL
     Indication: AMENORRHOEA
     Dosage: 1 DOSAGE FORM, QD
     Route: 048
     Dates: end: 20130919
  3. ANDROCUR 12.5 MG [Suspect]
     Active Substance: CYPROTERONE ACETATE
     Indication: MENSTRUAL DISORDER
     Dosage: 12.5MILLIGRAMQD
     Route: 048
     Dates: start: 19910901, end: 20130919
  4. OROMONE [Suspect]
     Active Substance: ESTRADIOL
     Dosage: 1 DOSAGE FORM
     Route: 048
     Dates: end: 20130919

REACTIONS (1)
  - Meningioma [Recovering/Resolving]

NARRATIVE: CASE EVENT DATE: 201306
